FAERS Safety Report 4359551-0 (Version None)
Quarter: 2004Q2

REPORT INFORMATION
  Report Type: 
  Country: None (occurrence: None)
  Receive Date: 20040514
  Receipt Date: 20040514
  Transmission Date: 20050107
  Serious: Yes (Hospitalization)
  Sender: FDA-Public Use
  Company Number: None

PATIENT
  Age: 71 Year
  Sex: Male

DRUGS (13)
  1. FUROSEMIDE [Suspect]
     Indication: RENAL DISORDER
     Dosage: 120 MG BID
     Dates: start: 20020401
  2. METOLAZONE [Suspect]
     Dosage: 20 MG BID
     Dates: start: 20031001
  3. ASPIRIN [Concomitant]
  4. FINASTERIDE [Concomitant]
  5. GUAIFENESIN [Concomitant]
  6. LEVOFLOXACIN [Concomitant]
  7. LISINOPRIL [Concomitant]
  8. OXYCODONE [Concomitant]
  9. PREDNISONE [Concomitant]
  10. ACIPHEX [Concomitant]
  11. ZANTAC [Concomitant]
  12. SENNOKOT [Concomitant]
  13. WARFARIN SODIUM [Concomitant]

REACTIONS (1)
  - DIZZINESS [None]
